FAERS Safety Report 8095674-0 (Version None)
Quarter: 2012Q1

REPORT INFORMATION
  Report Type: 
  Country: None (occurrence: None)
  Receive Date: 20120129
  Receipt Date: 20111215
  Transmission Date: 20120608
  Serious: No
  Sender: FDA-Public Use
  Company Number: US-ABBOTT-11P-163-0883925-00

PATIENT
  Sex: Female
  Weight: 100.79 kg

DRUGS (4)
  1. HUMIRA [Suspect]
     Indication: PSORIATIC ARTHROPATHY
     Route: 058
     Dates: start: 20111026
  2. ENBREL [Suspect]
     Indication: PSORIATIC ARTHROPATHY
     Dates: start: 20090101, end: 20110501
  3. ENBREL [Suspect]
     Dates: start: 20110701, end: 20111001
  4. AZATHIOPRINE [Concomitant]
     Indication: PSORIATIC ARTHROPATHY
     Dates: start: 20100101

REACTIONS (3)
  - PROCTITIS ULCERATIVE [None]
  - COLONIC POLYP [None]
  - DIARRHOEA [None]
